FAERS Safety Report 18069130 (Version 3)
Quarter: 2020Q4

REPORT INFORMATION
  Report Type: Spontaneous
  Country: US (occurrence: US)
  Receive Date: 20200725
  Receipt Date: 20201020
  Transmission Date: 20210113
  Serious: No
  Sender: FDA-Public Use
  Company Number: US-009507513-2007USA009306

PATIENT
  Age: 62 Year
  Sex: Female

DRUGS (2)
  1. PROVENTIL [Suspect]
     Active Substance: ALBUTEROL
     Dosage: 1-2 PUFF EVERY 4-6 HOURS AS NEEDED
     Dates: start: 20200512
  2. PROVENTIL [Suspect]
     Active Substance: ALBUTEROL
     Indication: EMPHYSEMA
     Dosage: 1-2 PUFF EVERY 4-6 HOURS AS NEEDED
     Dates: start: 2005

REACTIONS (3)
  - Product use in unapproved indication [Unknown]
  - Poor quality device used [Unknown]
  - Product quality issue [Unknown]

NARRATIVE: CASE EVENT DATE: 2005
